FAERS Safety Report 8096230-0 (Version None)
Quarter: 2012Q1

REPORT INFORMATION
  Report Type: 
  Country: None (occurrence: None)
  Receive Date: 20120129
  Receipt Date: 20111220
  Transmission Date: 20120608
  Serious: No
  Sender: FDA-Public Use
  Company Number: US-ABBOTT-11P-163-0885720-00

PATIENT
  Sex: Male
  Weight: 113.05 kg

DRUGS (5)
  1. WELLBUTRIN [Concomitant]
     Indication: DEPRESSION
  2. HUMIRA [Suspect]
     Indication: PSORIATIC ARTHROPATHY
     Dates: start: 20090101, end: 20111101
  3. TRAZODONE HCL [Concomitant]
     Indication: DEPRESSION
  4. HUMIRA [Suspect]
     Indication: PSORIASIS
     Dates: start: 20090101, end: 20090101
  5. IBUPROFEN [Concomitant]
     Indication: PAIN

REACTIONS (3)
  - ARTHRALGIA [None]
  - PSORIASIS [None]
  - DRUG INEFFECTIVE [None]
